FAERS Safety Report 4324701-9 (Version None)
Quarter: 2004Q1

REPORT INFORMATION
  Report Type: 
  Country: None (occurrence: None)
  Receive Date: 20040323
  Receipt Date: 20040309
  Transmission Date: 20041129
  Serious: Yes (Hospitalization)
  Sender: FDA-Public Use
  Company Number: AT-JNJFOC-20040301079

PATIENT
  Age: 60 Year
  Sex: Male

DRUGS (15)
  1. INFLIXIMAB, RECOMBINANT - BLINDED (INFLIXIMAB, RECOMBINANT) LYOPHILIZE [Suspect]
     Indication: COLITIS ULCERATIVE
     Dosage: INTRAVENOUS
     Route: 042
     Dates: start: 20040108
  2. INFLIXIMAB, RECOMBINANT - BLINDED (INFLIXIMAB, RECOMBINANT) LYOPHILIZE [Suspect]
     Indication: COLITIS ULCERATIVE
     Dosage: INTRAVENOUS
     Route: 042
     Dates: start: 20040122
  3. PLACEBO (PLACEBO) LYOPHILIZED POWDER [Suspect]
     Indication: COLITIS ULCERATIVE
     Dosage: INTRAVENOUS
     Route: 042
     Dates: start: 20040108
  4. PLACEBO (PLACEBO) LYOPHILIZED POWDER [Suspect]
     Indication: COLITIS ULCERATIVE
     Dosage: INTRAVENOUS
     Route: 042
     Dates: start: 20040122
  5. APREDNISOLON (PREDNISOLONE) [Concomitant]
  6. MESALAMINE (MESALAZINE) [Concomitant]
  7. PANTOPRAZOL (PANTOPRAZOL) [Concomitant]
  8. ENALAPRIL MALEATE [Concomitant]
  9. SINUPRET (SINUPRET) [Concomitant]
  10. MAGNESIUM VERLA (MAGNESIUM VERLA DRAGEES) [Concomitant]
  11. TERAZOSIN (TERAZOSIN) [Concomitant]
  12. VITAMIN (VITAMINS NOS) [Concomitant]
  13. TRAMADOL HCL [Concomitant]
  14. ARCA-BE (ALL OTHER THERAPEUTIC PRODUCTS) [Concomitant]
  15. TWINRIX (TWINRIX) [Concomitant]

REACTIONS (2)
  - COLITIS ULCERATIVE [None]
  - CONDITION AGGRAVATED [None]
